FAERS Safety Report 10343607 (Version 2)
Quarter: 2015Q3

REPORT INFORMATION
  Report Type: Spontaneous
  Country: JP (occurrence: JP)
  Receive Date: 20140725
  Receipt Date: 20150813
  Transmission Date: 20151125
  Serious: Yes (Hospitalization, Other)
  Sender: FDA-Public Use
  Company Number: JP-GLAXOSMITHKLINE-B0914613A

PATIENT
  Age: 14 Year
  Sex: Female
  Weight: 36 kg

DRUGS (4)
  1. HYCAMTIN [Suspect]
     Active Substance: TOPOTECAN HYDROCHLORIDE
     Indication: NEUROBLASTOMA
     Dosage: 29 MAY 2013-02 JUN 2013, 20 JUN 2013-24 JUN 2013, 17 JUL/2013-21 JUL 2013,12 AUG 2013-16 AUG 20[...]
     Route: 065
     Dates: start: 20130529, end: 20130913
  2. TRANSFUSION [Concomitant]
     Dates: start: 20130608, end: 20130927
  3. ADRIACIN [Suspect]
     Active Substance: DOXORUBICIN HYDROCHLORIDE
     Indication: NEUROBLASTOMA
     Dosage: 55 MG: 02 JUN 2013-02 JUN 201354 MG: 20 JUN 2013-20 JUN 2013, 21 JUL 2013-21 JUL 201328 MG: 16 [...]
     Route: 065
     Dates: start: 20130602, end: 20130910
  4. ONCOVIN [Concomitant]
     Active Substance: VINCRISTINE SULFATE
     Dosage: 02 JUNE 2013-02 JUNE 2013, 20 JUNE 2013-20 JUNE 2013, 21 JULY 2013-21 JULY 2013,16 AUGUST 2013-[...]
     Dates: start: 20130602, end: 20130909

REACTIONS (1)
  - Neutropenia [Unknown]

NARRATIVE: CASE EVENT DATE: 20130611
